FAERS Safety Report 5043890-4 (Version None)
Quarter: 2006Q3

REPORT INFORMATION
  Report Type: 
  Country: None (occurrence: None)
  Receive Date: 20060706
  Receipt Date: 20060626
  Transmission Date: 20061208
  Serious: Yes (Other)
  Sender: FDA-Public Use
  Company Number: US-BRISTOL-MYERS SQUIBB COMPANY-13428891

PATIENT
  Age: 9 Year
  Sex: Female

DRUGS (6)
  1. ETOPOSIDE [Suspect]
     Indication: NEPHROBLASTOMA
  2. CYCLOPHOSPHAMIDE [Suspect]
     Indication: NEPHROBLASTOMA
  3. DOXORUBICIN [Suspect]
     Indication: NEPHROBLASTOMA
  4. CARBOPLATIN [Suspect]
     Indication: NEPHROBLASTOMA
  5. VINCRISTINE [Suspect]
     Indication: NEPHROBLASTOMA
  6. DACTINOMYCIN [Suspect]
     Indication: NEPHROBLASTOMA

REACTIONS (2)
  - RENAL CELL CARCINOMA STAGE UNSPECIFIED [None]
  - TREATMENT RELATED SECONDARY MALIGNANCY [None]
